FAERS Safety Report 8185343-0 (Version None)
Quarter: 2012Q1

REPORT INFORMATION
  Report Type: 
  Country: None (occurrence: None)
  Receive Date: 20120305
  Receipt Date: 20120227
  Transmission Date: 20120608
  Serious: Yes (Hospitalization)
  Sender: FDA-Public Use
  Company Number: PHHY2011CA95178

PATIENT
  Sex: Female

DRUGS (4)
  1. EXJADE [Suspect]
     Indication: MYELODYSPLASTIC SYNDROME
     Dosage: 1000 MG
     Route: 048
  2. MULTI-VITAMINS [Concomitant]
  3. EXJADE [Suspect]
     Dosage: UNK
  4. FOSAVANCE [Concomitant]

REACTIONS (6)
  - MALAISE [None]
  - PULMONARY OEDEMA [None]
  - URINE ABNORMALITY [None]
  - DYSPNOEA [None]
  - PERICARDITIS [None]
  - INFLUENZA [None]
